FAERS Safety Report 12947919 (Version 1)
Quarter: 2016Q4

REPORT INFORMATION
  Report Type: Report from Study
  Country: CA (occurrence: CA)
  Receive Date: 20161117
  Receipt Date: 20161117
  Transmission Date: 20170207
  Serious: Yes (Other)
  Sender: FDA-Public Use
  Company Number: CA-ROCHE-ITM201506IM018523

PATIENT
  Sex: Male
  Weight: 99.8 kg

DRUGS (11)
  1. SPIRIVA [Concomitant]
     Active Substance: TIOTROPIUM BROMIDE MONOHYDRATE
  2. RIOCIGUAT [Concomitant]
     Active Substance: RIOCIGUAT
     Indication: ARTHRITIS
  3. PANADEINE CO [Concomitant]
     Active Substance: ACETAMINOPHEN\CODEINE PHOSPHATE
  4. TYLENOL WITH CODEINE [Concomitant]
     Active Substance: ACETAMINOPHEN\CODEINE PHOSPHATE
  5. OMEPRAZOLE. [Concomitant]
     Active Substance: OMEPRAZOLE
  6. ESBRIET [Suspect]
     Active Substance: PIRFENIDONE
     Indication: IDIOPATHIC PULMONARY FIBROSIS
     Route: 048
     Dates: start: 20141126
  7. ESBRIET [Suspect]
     Active Substance: PIRFENIDONE
     Route: 048
  8. VENTOLIN [Concomitant]
     Active Substance: ALBUTEROL SULFATE
     Route: 065
  9. SYMBICORT [Concomitant]
     Active Substance: BUDESONIDE\FORMOTEROL FUMARATE DIHYDRATE
  10. CANDESARTAN [Concomitant]
     Active Substance: CANDESARTAN
  11. ROSUVASTATIN. [Concomitant]
     Active Substance: ROSUVASTATIN

REACTIONS (1)
  - Arthritis [Unknown]
